FAERS Safety Report 8070839-2 (Version None)
Quarter: 2012Q1

REPORT INFORMATION
  Report Type: 
  Country: None (occurrence: None)
  Receive Date: 20120125
  Receipt Date: 20120119
  Transmission Date: 20120608
  Serious: Yes (Life-Threatening)
  Sender: FDA-Public Use
  Company Number: RU-VIIV HEALTHCARE LIMITED-B0768920A

PATIENT
  Age: 34 Year
  Sex: Female

DRUGS (4)
  1. VIDEX [Concomitant]
     Indication: HIV INFECTION
     Route: 065
     Dates: start: 20111111
  2. RITONAVIR [Concomitant]
     Indication: HIV INFECTION
     Route: 065
     Dates: start: 20111111
  3. REYATAZ [Concomitant]
     Indication: HIV INFECTION
     Route: 065
     Dates: start: 20111111
  4. ABACAVIR [Suspect]
     Indication: HIV INFECTION
     Route: 048
     Dates: start: 20111114, end: 20111122

REACTIONS (8)
  - HYPERSENSITIVITY [None]
  - RASH [None]
  - FACE OEDEMA [None]
  - ASTHENIA [None]
  - PYREXIA [None]
  - DRY SKIN [None]
  - THROAT IRRITATION [None]
  - LIP OEDEMA [None]
